FAERS Safety Report 4714632-4 (Version None)
Quarter: 2005Q3

REPORT INFORMATION
  Report Type: 
  Country: None (occurrence: None)
  Receive Date: 20050714
  Receipt Date: 20050714
  Transmission Date: 20060218
  Serious: Yes (Other)
  Sender: FDA-Public Use
  Company Number: None

PATIENT
  Age: 56 Year
  Sex: Male
  Weight: 97.977 kg

DRUGS (1)
  1. CEPHALEXIN [Suspect]
     Dosage: 500 MG Q6 H ORAL
     Route: 048

REACTIONS (2)
  - HYPERSENSITIVITY [None]
  - RASH [None]
